FAERS Safety Report 6692654-4 (Version None)
Quarter: 2010Q2

REPORT INFORMATION
  Report Type: 
  Country: None (occurrence: None)
  Receive Date: 20100422
  Receipt Date: 20100413
  Transmission Date: 20101027
  Serious: Yes (Death)
  Sender: FDA-Public Use
  Company Number: US-PFIZER INC-2010022729

PATIENT
  Sex: Female
  Weight: 114.3 kg

DRUGS (13)
  1. REVATIO [Suspect]
     Indication: PULMONARY ARTERIAL HYPERTENSION
     Dosage: 40 MG, 3X/DAY
     Route: 048
     Dates: start: 20070101
  2. REVATIO [Suspect]
     Indication: SARCOIDOSIS
  3. INSULIN [Concomitant]
  4. PREDNISONE [Concomitant]
  5. WARFARIN [Concomitant]
  6. SIMVASTATIN [Concomitant]
  7. LANSOPRAZOLE [Concomitant]
  8. OXYGEN [Concomitant]
  9. ALBUTEROL [Concomitant]
  10. VALSARTAN [Concomitant]
  11. ASPIRIN [Concomitant]
  12. AMITRIPTYLINE [Concomitant]
  13. GABAPENTIN [Concomitant]

REACTIONS (1)
  - DEATH [None]
